FAERS Safety Report 9075049 (Version 1)
Quarter: 2013Q1

REPORT INFORMATION
  Report Type: Report from Study
  Country: US (occurrence: US)
  Receive Date: 20130128
  Receipt Date: 20130128
  Transmission Date: 20140127
  Serious: No
  Sender: FDA-Public Use
  Company Number: US-ABBOTT-12P-163-0903401-00

PATIENT
  Age: 54 Year
  Sex: Female

DRUGS (5)
  1. HUMIRA 40 MG/0.8 ML PEN [Suspect]
     Indication: PSORIASIS
     Dates: start: 20120104
  2. CRESTOR [Concomitant]
     Indication: BLOOD CHOLESTEROL INCREASED
  3. ATENOLOL [Concomitant]
     Indication: HYPERTENSION
  4. NAPROXEN [Concomitant]
     Indication: BACK PAIN
  5. NAPROXEN [Concomitant]
     Indication: PAIN IN EXTREMITY

REACTIONS (4)
  - Chest discomfort [Not Recovered/Not Resolved]
  - Abdominal distension [Unknown]
  - Injection site haemorrhage [Unknown]
  - Rash [Recovered/Resolved]
